FAERS Safety Report 22635317 (Version 1)
Quarter: 2023Q2

REPORT INFORMATION
  Report Type: Spontaneous
  Country: ES (occurrence: ES)
  Receive Date: 20230623
  Receipt Date: 20230623
  Transmission Date: 20230721
  Serious: Yes (Other)
  Sender: FDA-Public Use
  Company Number: None

PATIENT
  Age: 53 Year
  Sex: Female

DRUGS (4)
  1. XELJANZ [Suspect]
     Active Substance: TOFACITINIB CITRATE
     Indication: Polyarthritis
     Dosage: 5 MG, FREQ:12 H
     Route: 048
     Dates: start: 20180705, end: 20230502
  2. HUMIRA [Concomitant]
     Active Substance: ADALIMUMAB
     Indication: Polyarthritis
     Dosage: 15 MG, FREQ:15 D
     Route: 058
     Dates: start: 20161202, end: 201704
  3. CIMZIA [Concomitant]
     Active Substance: CERTOLIZUMAB PEGOL
     Indication: Polyarthritis
     Dosage: 200 MG, FREQ:15 D
     Route: 058
     Dates: start: 20170428, end: 201712
  4. COSENTYX [Concomitant]
     Active Substance: SECUKINUMAB
     Indication: Polyarthritis
     Dosage: UNK
     Route: 058
     Dates: start: 20180309, end: 20180620

REACTIONS (2)
  - Lentigo maligna [Recovered/Resolved]
  - Off label use [Unknown]

NARRATIVE: CASE EVENT DATE: 20230328
